FAERS Safety Report 21571930 (Version 7)
Quarter: 2022Q4

REPORT INFORMATION
  Report Type: Report from Study
  Country: KR (occurrence: KR)
  Receive Date: 20221109
  Receipt Date: 20221220
  Transmission Date: 20230112
  Serious: Yes (Death, Life-Threatening, Hospitalization, Other)
  Sender: FDA-Public Use
  Company Number: KR-JNJFOC-20221053907

PATIENT
  Age: 75 Year
  Sex: Male
  Weight: 57.6 kg

DRUGS (33)
  1. TECLISTAMAB [Suspect]
     Active Substance: TECLISTAMAB
     Indication: Plasma cell myeloma
     Dosage: STEP UP DOSE
     Route: 058
     Dates: start: 20220630, end: 20221013
  2. TECLISTAMAB [Suspect]
     Active Substance: TECLISTAMAB
     Dosage: STEP 2 DOSE
     Route: 058
     Dates: start: 20220704
  3. TECLISTAMAB [Suspect]
     Active Substance: TECLISTAMAB
     Dosage: STEP 3 DOSE
     Route: 058
     Dates: start: 20220706
  4. TECLISTAMAB [Suspect]
     Active Substance: TECLISTAMAB
     Dosage: FULL DOSE
     Route: 058
     Dates: start: 20220708
  5. TECLISTAMAB [Suspect]
     Active Substance: TECLISTAMAB
     Dosage: D4D15 FULL DOSE
     Route: 058
     Dates: start: 20221013, end: 20221013
  6. JNJ-64407564 [Suspect]
     Active Substance: JNJ-64407564
     Indication: Plasma cell myeloma
     Dosage: STEP 1 DOSE?4.8 ML
     Route: 065
     Dates: start: 20220630, end: 20221013
  7. JNJ-64407564 [Suspect]
     Active Substance: JNJ-64407564
     Dosage: STEP 2 DOSE
     Route: 065
     Dates: start: 20220704
  8. JNJ-64407564 [Suspect]
     Active Substance: JNJ-64407564
     Dosage: STEP 3 DOSE
     Route: 065
     Dates: start: 20220706
  9. JNJ-64407564 [Suspect]
     Active Substance: JNJ-64407564
     Dosage: FULL DOSE
     Route: 065
     Dates: start: 20220708
  10. JNJ-64407564 [Suspect]
     Active Substance: JNJ-64407564
     Dosage: C4D15 FULL DOSE
     Route: 065
     Dates: start: 20221013, end: 20221013
  11. EDOXABAN [Concomitant]
     Active Substance: EDOXABAN
     Indication: Pulmonary embolism
     Route: 048
     Dates: start: 20220531
  12. ACYCLOVIR [Concomitant]
     Active Substance: ACYCLOVIR
     Indication: Antiviral prophylaxis
     Route: 048
     Dates: start: 20220630
  13. ACYCLOVIR [Concomitant]
     Active Substance: ACYCLOVIR
     Dates: start: 20220804
  14. SULFAMETHOXAZOLE AND TRIMETHOPRIM [Concomitant]
     Active Substance: SULFAMETHOXAZOLE\TRIMETHOPRIM
     Indication: Infection prophylaxis
     Route: 048
     Dates: start: 20220630
  15. MEGESTROL [Concomitant]
     Active Substance: MEGESTROL
     Indication: Anorexia nervosa
     Route: 048
     Dates: start: 20220704
  16. LACTICARE HC [HYDROCORTISONE] [Concomitant]
     Indication: Rash
     Route: 062
     Dates: start: 20220714
  17. ULTRACET [Concomitant]
     Active Substance: ACETAMINOPHEN\TRAMADOL HYDROCHLORIDE
     Indication: Spinal stenosis
     Route: 051
  18. CEBETABS [Concomitant]
     Indication: Prophylaxis
     Route: 048
  19. SILODOSIN [Concomitant]
     Active Substance: SILODOSIN
     Indication: Benign prostatic hyperplasia
     Route: 048
  20. ESOMEPRAZOLE [Concomitant]
     Active Substance: ESOMEPRAZOLE
     Indication: Gastrointestinal disorder therapy
     Route: 048
     Dates: end: 20221118
  21. GABAPENTIN [Concomitant]
     Active Substance: GABAPENTIN
     Indication: Neuropathy peripheral
     Route: 048
     Dates: end: 20221118
  22. NALOXONE HYDROCHLORIDE\OXYCODONE HYDROCHLORIDE [Concomitant]
     Active Substance: NALOXONE HYDROCHLORIDE\OXYCODONE HYDROCHLORIDE
     Indication: Pain
     Route: 048
     Dates: end: 20221118
  23. HERBALS [Concomitant]
     Active Substance: HERBALS
     Indication: Prophylaxis
     Route: 048
  24. OPALMON [Concomitant]
     Active Substance: LIMAPROST
     Indication: Spinal stenosis
     Route: 048
  25. OMACOR [Concomitant]
     Active Substance: OMEGA-3-ACID ETHYL ESTERS
     Indication: Dyslipidaemia
     Route: 048
  26. LIVALO [Concomitant]
     Active Substance: PITAVASTATIN CALCIUM
     Indication: Dyslipidaemia
     Route: 048
  27. ULTRACET [Concomitant]
     Active Substance: ACETAMINOPHEN\TRAMADOL HYDROCHLORIDE
     Indication: Lumbar spinal stenosis
  28. CEBETABS [Concomitant]
     Indication: Prophylaxis
     Route: 048
  29. CETAMADOL [Concomitant]
     Indication: Spinal stenosis
     Route: 051
  30. BEECOM [Concomitant]
     Indication: Prophylaxis
  31. SILODOSIN [Concomitant]
     Active Substance: SILODOSIN
     Indication: Benign prostatic hyperplasia
  32. ESOMEPRAZOLE [Concomitant]
     Active Substance: ESOMEPRAZOLE
     Indication: Gastrointestinal disorder therapy
     Route: 048
  33. ENTECAVIR [Concomitant]
     Active Substance: ENTECAVIR
     Indication: Prophylaxis
     Route: 048
     Dates: start: 20220804

REACTIONS (2)
  - COVID-19 [Not Recovered/Not Resolved]
  - COVID-19 pneumonia [Fatal]

NARRATIVE: CASE EVENT DATE: 20221021
